FAERS Safety Report 6108375-2 (Version None)
Quarter: 2009Q1

REPORT INFORMATION
  Report Type: 
  Country: None (occurrence: None)
  Receive Date: 20090309
  Receipt Date: 20090225
  Transmission Date: 20090719
  Serious: Yes (Hospitalization)
  Sender: FDA-Public Use
  Company Number: FR-PFIZER INC-2009178254

PATIENT

DRUGS (1)
  1. XANAX [Suspect]

REACTIONS (5)
  - ELECTROCARDIOGRAM QT PROLONGED [None]
  - GAIT DISTURBANCE [None]
  - HYPOTONIA [None]
  - MALAISE [None]
  - SOMNOLENCE [None]
